FAERS Safety Report 12875726 (Version 1)
Quarter: 2016Q4

REPORT INFORMATION
  Report Type: Spontaneous
  Country: DK (occurrence: DK)
  Receive Date: 20161024
  Receipt Date: 20161024
  Transmission Date: 20170207
  Serious: Yes (Death, Hospitalization, Other)
  Sender: FDA-Public Use
  Company Number: DK-PAR PHARMACEUTICAL COMPANIES-2016SCPR016042

PATIENT
  Age: 18 Year
  Sex: Female

DRUGS (1)
  1. VENLAFAXINE HYDROCHLORIDE. [Suspect]
     Active Substance: VENLAFAXINE HYDROCHLORIDE
     Indication: PRODUCT USED FOR UNKNOWN INDICATION
     Dosage: 22 G, UNKNOWN
     Route: 048

REACTIONS (9)
  - Cardiac arrest [Recovered/Resolved]
  - Suicide attempt [Unknown]
  - Cardiac failure [Fatal]
  - Arrhythmia [Recovered/Resolved]
  - Serotonin syndrome [Unknown]
  - Seizure [Unknown]
  - Hypotension [Unknown]
  - Overdose [Fatal]
  - Hepatic failure [Fatal]
